FAERS Safety Report 18664590 (Version 1)
Quarter: 2020Q4

REPORT INFORMATION
  Report Type: Report from Study
  Country: US (occurrence: US)
  Receive Date: 20201225
  Receipt Date: 20201225
  Transmission Date: 20210114
  Serious: No
  Sender: FDA-Public Use
  Company Number: NVSC2020US337986

PATIENT

DRUGS (1)
  1. MYFORTIC [Suspect]
     Active Substance: MYCOPHENOLATE SODIUM
     Indication: TRANSPLANT
     Dosage: 360 MG, BID
     Route: 048

REACTIONS (3)
  - Erythema [Unknown]
  - Pain [Unknown]
  - Furuncle [Unknown]
